FAERS Safety Report 7217642-0 (Version None)
Quarter: 2011Q1

REPORT INFORMATION
  Report Type: 
  Country: None (occurrence: None)
  Receive Date: 20110110
  Receipt Date: 20110103
  Transmission Date: 20110831
  Serious: Yes (Hospitalization)
  Sender: FDA-Public Use
  Company Number: FR-ROCHE-751450

PATIENT
  Sex: Female
  Weight: 71 kg

DRUGS (6)
  1. BEVACIZUMAB [Suspect]
     Indication: GLIOBLASTOMA
     Dosage: DATE OF LAST DOSE PRIOR TO SAE: 22 NOVEMBER 2010, LAST DOSE ADMINISTERED: 712.5 MG, CYCLE 4
     Route: 042
     Dates: start: 20101011
  2. PROPRANOLOL [Concomitant]
     Indication: TACHYCARDIA
     Route: 048
     Dates: start: 20000101
  3. NEXIUM [Concomitant]
     Indication: PROPHYLAXIS
     Route: 048
     Dates: start: 20100316
  4. DEPAKENE [Concomitant]
     Indication: CONVULSION PROPHYLAXIS
     Route: 042
     Dates: start: 20101109
  5. MEDROL [Concomitant]
     Route: 048
     Dates: start: 20100801
  6. IRINOTECAN [Suspect]
     Indication: GLIOBLASTOMA
     Dosage: DATE OF LAST DOSE PRIOR TO SAE: 22 NOVEMBER 2010, LAST DOSE ADMINISTERED: 210 MG, CYCLE 4
     Route: 042
     Dates: start: 20101011

REACTIONS (1)
  - PARTIAL SEIZURES [None]
